FAERS Safety Report 9986575 (Version 1)
Quarter: 2014Q1

REPORT INFORMATION
  Report Type: Spontaneous
  Country: US (occurrence: US)
  Receive Date: 20140307
  Receipt Date: 20140307
  Transmission Date: 20141002
  Serious: No
  Sender: FDA-Public Use
  Company Number: US-ASTRAZENECA-2014SE09669

PATIENT
  Age: 71 Year
  Sex: Female

DRUGS (4)
  1. NEXIUM [Suspect]
     Route: 048
  2. TAGAMET [Suspect]
  3. TUMS [Suspect]
  4. PEPCID [Suspect]

REACTIONS (2)
  - Adverse event [Unknown]
  - Drug ineffective [Unknown]
